FAERS Safety Report 7010967-3 (Version None)
Quarter: 2010Q3

REPORT INFORMATION
  Report Type: 
  Country: None (occurrence: None)
  Receive Date: 20100923
  Receipt Date: 20081030
  Transmission Date: 20110219
  Serious: No
  Sender: FDA-Public Use
  Company Number: US-WYE-H04159808

PATIENT
  Age: 56 Year
  Sex: Female

DRUGS (11)
  1. EFFEXOR XR [Suspect]
     Indication: DEPRESSION
     Route: 048
  2. EFFEXOR XR [Suspect]
     Indication: ANXIETY
     Route: 048
  3. EFFEXOR XR [Suspect]
     Route: 048
  4. EFFEXOR XR [Suspect]
     Route: 048
  5. EFFEXOR XR [Suspect]
     Route: 048
  6. EFFEXOR XR [Suspect]
     Route: 048
  7. EFFEXOR XR [Suspect]
     Route: 048
  8. EFFEXOR XR [Suspect]
     Route: 048
     Dates: start: 20080518
  9. NEURONTIN [Concomitant]
  10. LORAZEPAM [Concomitant]
  11. LEXAPRO [Concomitant]

REACTIONS (7)
  - BLOOD PRESSURE INCREASED [None]
  - DIZZINESS [None]
  - DRUG INEFFECTIVE [None]
  - DRUG WITHDRAWAL SYNDROME [None]
  - FATIGUE [None]
  - INFLUENZA LIKE ILLNESS [None]
  - SOMNOLENCE [None]
